FAERS Safety Report 7619933 (Version 2)
Quarter: 2013Q4

REPORT INFORMATION
  Report Type: Report from Study
  Country: US (occurrence: US)
  Receive Date: 20101007
  Receipt Date: 20131003
  Transmission Date: 20140711
  Serious: Yes (Hospitalization)
  Sender: FDA-Public Use
  Company Number: US-BRISTOL-MYERS SQUIBB COMPANY-14939862

PATIENT
  Age: 75 Year
  Sex: Male
  Weight: 81.2 kg

DRUGS (23)
  1. CETUXIMAB [Suspect]
     Indication: TRANSITIONAL CELL CARCINOMA
     Dosage: FORM INJ
     Route: 042
     Dates: start: 20090928, end: 20100401
  2. CISPLATIN FOR INJ [Suspect]
     Indication: TRANSITIONAL CELL CARCINOMA
     Dosage: FORM INJ
     Route: 042
     Dates: start: 20090928, end: 20100401
  3. GEMCITABINE [Suspect]
     Indication: TRANSITIONAL CELL CARCINOMA
     Dosage: FORM INJ
     Route: 042
     Dates: start: 20090928, end: 20100401
  4. GLIPIZIDE [Concomitant]
  5. AMLODIPINE [Concomitant]
  6. OXYCONTIN [Concomitant]
  7. ZOFRAN [Concomitant]
  8. LORAZEPAM [Concomitant]
  9. DEXAMETHASONE [Concomitant]
     Dates: start: 20090928
  10. GABAPENTIN [Concomitant]
  11. ANCEF [Concomitant]
     Indication: PHLEBITIS
     Dates: start: 20100109, end: 20100109
  12. ASPIRIN [Concomitant]
  13. AMBIEN [Concomitant]
  14. HYDROMORPHONE [Concomitant]
  15. ENOXAPARIN [Concomitant]
  16. DOCUSATE [Concomitant]
  17. CLINDAMYCIN [Concomitant]
  18. ZOLOFT [Concomitant]
  19. ZANTAC [Concomitant]
  20. OCUVITE [Concomitant]
  21. MAGNESIUM OXIDE [Concomitant]
  22. LIPITOR [Concomitant]
  23. EMEND [Concomitant]
     Dates: start: 20090928

REACTIONS (2)
  - Spinal compression fracture [Unknown]
  - Deep vein thrombosis [Recovered/Resolved]
